FAERS Safety Report 10146175 (Version 1)
Quarter: 2014Q2

REPORT INFORMATION
  Report Type: Spontaneous
  Country: US (occurrence: None)
  Receive Date: 20140429
  Receipt Date: 20140429
  Transmission Date: 20141212
  Serious: Yes (Hospitalization)
  Sender: FDA-Public Use
  Company Number: 2315391

PATIENT
  Age: 4 Day
  Sex: Male

DRUGS (3)
  1. GENTAMICIN SULFATE [Suspect]
     Indication: PNEUMONIA
  2. AMPICILLIN [Suspect]
     Indication: PNEUMONIA
  3. MORPHINE [Suspect]

REACTIONS (7)
  - Thrombocytopenia [None]
  - Fat necrosis [None]
  - Purpura [None]
  - Petechiae [None]
  - Drug eruption [None]
  - Haemorrhage [None]
  - Hypercalcaemia [None]
